FAERS Safety Report 11080807 (Version 1)
Quarter: 2015Q2

REPORT INFORMATION
  Report Type: Spontaneous
  Country: None (occurrence: None)
  Receive Date: 20150430
  Receipt Date: 20150430
  Transmission Date: 20150821
  Serious: Yes (Life-Threatening, Disabling, Other)
  Sender: FDA-Public Use
  Company Number: None

PATIENT
  Age: 21 Year
  Sex: Female
  Weight: 49.9 kg

DRUGS (1)
  1. MIRENA [Suspect]
     Active Substance: LEVONORGESTREL

REACTIONS (30)
  - Constipation [None]
  - Extrasystoles [None]
  - Hyperhidrosis [None]
  - Acne [None]
  - Weight increased [None]
  - Libido decreased [None]
  - Feelings of worthlessness [None]
  - Mood swings [None]
  - Fear [None]
  - Heart rate increased [None]
  - Migraine [None]
  - Weight decreased [None]
  - Anxiety [None]
  - Insomnia [None]
  - Panic attack [None]
  - Muscle spasms [None]
  - Apathy [None]
  - Self esteem decreased [None]
  - Fatigue [None]
  - Suicidal ideation [None]
  - Irritability [None]
  - Depression [None]
  - Depressed level of consciousness [None]
  - Hot flush [None]
  - Back pain [None]
  - Memory impairment [None]
  - Disturbance in attention [None]
  - Cervix disorder [None]
  - Angina pectoris [None]
  - Device dislocation [None]

NARRATIVE: CASE EVENT DATE: 20150429
